FAERS Safety Report 6278985-0 (Version None)
Quarter: 2009Q3

REPORT INFORMATION
  Report Type: 
  Country: None (occurrence: None)
  Receive Date: 20090723
  Receipt Date: 20090720
  Transmission Date: 20100115
  Serious: Yes (Hospitalization)
  Sender: FDA-Public Use
  Company Number: US-EISAI INC.-E2020-04381-CLI-US

PATIENT
  Sex: Female
  Weight: 52 kg

DRUGS (15)
  1. E2020-SR [Suspect]
     Route: 048
     Dates: start: 20090130, end: 20090717
  2. CELEXA [Concomitant]
  3. ZOCOR [Concomitant]
     Dates: start: 20040101
  4. SEROQUEL [Concomitant]
     Dates: start: 20040101
  5. NAMENDA [Concomitant]
     Dates: start: 20050101
  6. GLIMEPIRIDE [Concomitant]
  7. RISPERDAL [Concomitant]
     Dates: start: 20070101
  8. ALEVE [Concomitant]
     Dates: start: 20070101
  9. MULTI-VITAMINS [Concomitant]
     Dates: start: 19880101
  10. NEXIUM [Concomitant]
     Dates: start: 19980101
  11. COLACE [Concomitant]
     Dates: start: 20060101
  12. VITAMIN B-12 [Concomitant]
     Dates: start: 20070101
  13. BONIVA [Concomitant]
  14. DIPHENHYDRAMINE HCL [Concomitant]
     Dates: start: 20080922
  15. HYDROCODONE [Concomitant]

REACTIONS (3)
  - ANAEMIA [None]
  - HIP FRACTURE [None]
  - OESOPHAGEAL ULCER [None]
